FAERS Safety Report 25610157 (Version 1)
Quarter: 2025Q3

REPORT INFORMATION
  Report Type: Other
  Country: EU (occurrence: EU)
  Receive Date: 20250728
  Receipt Date: 20250728
  Transmission Date: 20251021
  Serious: Yes (Hospitalization, Other)
  Sender: ASPEN
  Company Number: EU-MEDINFARP-2025-0130

PATIENT

DRUGS (3)
  1. DEXAMETHASONE [Suspect]
     Active Substance: DEXAMETHASONE
     Indication: Cerebral toxoplasmosis
     Route: 065
  2. PYRIMETHAMINE [Concomitant]
     Active Substance: PYRIMETHAMINE
     Indication: Cerebral toxoplasmosis
     Route: 065
  3. SULFADIAZINE [Concomitant]
     Active Substance: SULFADIAZINE
     Indication: Cerebral toxoplasmosis
     Route: 065

REACTIONS (1)
  - Kaposi^s sarcoma [Unknown]
